FAERS Safety Report 9630735 (Version 3)
Quarter: 2013Q4

REPORT INFORMATION
  Report Type: Spontaneous
  Country: CZ (occurrence: CZ)
  Receive Date: 20131018
  Receipt Date: 20131225
  Transmission Date: 20140711
  Serious: Yes (Disabling, Other)
  Sender: FDA-Public Use
  Company Number: CZ-ROCHE-1290542

PATIENT
  Age: 10 Year
  Sex: Female

DRUGS (2)
  1. ACTILYSE [Suspect]
     Indication: ARTERIAL THROMBOSIS
     Dosage: PROLONGED THERAPY
     Route: 013
  2. HEPARIN [Suspect]
     Indication: ARTERIAL THROMBOSIS
     Route: 065

REACTIONS (4)
  - Extremity necrosis [Recovered/Resolved with Sequelae]
  - Extremity necrosis [Recovered/Resolved with Sequelae]
  - Pyrexia [Unknown]
  - Drug ineffective [Unknown]
